FAERS Safety Report 4643586-4 (Version None)
Quarter: 2005Q2

REPORT INFORMATION
  Report Type: 
  Country: None (occurrence: None)
  Receive Date: 20050425
  Receipt Date: 20050314
  Transmission Date: 20051028
  Serious: Yes (Hospitalization)
  Sender: FDA-Public Use
  Company Number: US-BOEHRINGER INGELHEIM PHARMACEUTICALS, INC.-2005-BP-04260BP

PATIENT
  Sex: Female

DRUGS (3)
  1. ATROVENT INH. SOLUTION 0.02% UDV [Suspect]
     Indication: ASTHMA
     Route: 055
     Dates: start: 20050201, end: 20050201
  2. ADVAIR DISKUS 100/50 [Concomitant]
  3. ALBUTEROL [Concomitant]

REACTIONS (4)
  - DYSPNOEA [None]
  - HYPERVENTILATION [None]
  - MYDRIASIS [None]
  - VISION BLURRED [None]
